FAERS Safety Report 20359384 (Version 2)
Quarter: 2022Q1

REPORT INFORMATION
  Report Type: Spontaneous
  Country: JP (occurrence: JP)
  Receive Date: 20220121
  Receipt Date: 20220131
  Transmission Date: 20220423
  Serious: Yes (Death)
  Sender: FDA-Public Use
  Company Number: JP-NOVARTISPH-NVSJ2022JP001613

PATIENT
  Age: 89 Year
  Sex: Male

DRUGS (1)
  1. AMLODIPINE BESYLATE\VALSARTAN [Suspect]
     Active Substance: AMLODIPINE BESYLATE\VALSARTAN
     Indication: Hypertension
     Dosage: 1 DF:VALSARTAN 80MG,AMLODIPINE 5MG
     Route: 048

REACTIONS (2)
  - Myocardial infarction [Fatal]
  - Fall [Unknown]
